FAERS Safety Report 21161313 (Version 1)
Quarter: 2022Q3

REPORT INFORMATION
  Report Type: Spontaneous
  Country: US (occurrence: None)
  Receive Date: 20220801
  Receipt Date: 20220801
  Transmission Date: 20221027
  Serious: Yes (Disabling)
  Sender: FDA-Public Use
  Company Number: None

PATIENT
  Age: 33 Year
  Sex: Female
  Weight: 45 kg

DRUGS (2)
  1. TRIAMCINOLONE [Suspect]
     Active Substance: TRIAMCINOLONE
     Indication: Dermatitis contact
     Dosage: OTHER QUANTITY : 1 DROP(S);?FREQUENCY : TWICE A DAY;?
     Route: 061
     Dates: start: 20220719, end: 20220727
  2. Spironolactone 50mg BID: nuvaring [Concomitant]

REACTIONS (10)
  - Rash papular [None]
  - Rash pruritic [None]
  - Rash erythematous [None]
  - Application site rash [None]
  - Rash [None]
  - Hyperaesthesia [None]
  - Temperature intolerance [None]
  - Hyperaesthesia [None]
  - Urticaria aquagenic [None]
  - Dermatitis [None]

NARRATIVE: CASE EVENT DATE: 20220727
